FAERS Safety Report 25057265 (Version 1)
Quarter: 2025Q1

REPORT INFORMATION
  Report Type: Spontaneous
  Country: CN (occurrence: CN)
  Receive Date: 20250310
  Receipt Date: 20250310
  Transmission Date: 20250409
  Serious: Yes (Other)
  Sender: ROCHE
  Company Number: CN-ROCHE-10000220720

PATIENT
  Age: 49 Year
  Sex: Female

DRUGS (6)
  1. PERTUZUMAB [Suspect]
     Active Substance: PERTUZUMAB
     Indication: Invasive breast carcinoma
     Route: 042
     Dates: start: 20250107, end: 20250107
  2. TRASTUZUMAB [Suspect]
     Active Substance: TRASTUZUMAB
     Indication: Invasive breast carcinoma
     Route: 042
     Dates: start: 20250107, end: 20250107
  3. PACLITAXEL [Suspect]
     Active Substance: PACLITAXEL
     Indication: Invasive breast carcinoma
     Route: 042
     Dates: start: 20250117, end: 20250117
  4. SODIUM CHLORIDE [Concomitant]
     Active Substance: SODIUM CHLORIDE
     Route: 042
     Dates: start: 20250107, end: 20250107
  5. SODIUM CHLORIDE [Concomitant]
     Active Substance: SODIUM CHLORIDE
     Route: 042
     Dates: start: 20250107, end: 20250107
  6. DEXTROSE [Concomitant]
     Active Substance: DEXTROSE MONOHYDRATE
     Route: 042
     Dates: start: 20250107, end: 20250107

REACTIONS (1)
  - Drug-induced liver injury [Unknown]

NARRATIVE: CASE EVENT DATE: 20250124
